FAERS Safety Report 8472312-6 (Version None)
Quarter: 2012Q2

REPORT INFORMATION
  Report Type: 
  Country: None (occurrence: None)
  Receive Date: 20120627
  Receipt Date: 20120621
  Transmission Date: 20120825
  Serious: No
  Sender: FDA-Public Use
  Company Number: US-BAYER-2012-062766

PATIENT
  Sex: Female

DRUGS (1)
  1. MIRENA [Suspect]
     Indication: CONTRACEPTION
     Dosage: 20 ?G/D, CONT
     Route: 015
     Dates: start: 20120613, end: 20120613

REACTIONS (4)
  - NAUSEA [None]
  - ABDOMINAL PAIN LOWER [None]
  - VOMITING [None]
  - DEVICE EXPULSION [None]
